FAERS Safety Report 7526807-X (Version None)
Quarter: 2011Q2

REPORT INFORMATION
  Report Type: 
  Country: None (occurrence: None)
  Receive Date: 20110606
  Receipt Date: 20110526
  Transmission Date: 20111010
  Serious: Yes (Death, Life-Threatening, Hospitalization, Other)
  Sender: FDA-Public Use
  Company Number: SD-BAXTER-2011BH016552

PATIENT
  Age: 76 Year
  Sex: Male

DRUGS (3)
  1. DIANEAL [Suspect]
     Indication: PERITONEAL DIALYSIS
     Route: 033
     Dates: start: 20101210
  2. DIANEAL [Suspect]
     Route: 033
     Dates: start: 20060904
  3. DIANEAL [Suspect]
     Route: 033

REACTIONS (4)
  - PERITONEAL DIALYSIS COMPLICATION [None]
  - CARDIOVASCULAR DISORDER [None]
  - PERITONITIS BACTERIAL [None]
  - PYREXIA [None]
